FAERS Safety Report 15243195 (Version 1)
Quarter: 2018Q3

REPORT INFORMATION
  Report Type: Spontaneous
  Country: US (occurrence: US)
  Receive Date: 20180806
  Receipt Date: 20180806
  Transmission Date: 20181010
  Serious: Yes (Other)
  Sender: FDA-Public Use
  Company Number: US-ROCHE-2163534

PATIENT
  Sex: Female

DRUGS (3)
  1. OCREVUS [Suspect]
     Active Substance: OCRELIZUMAB
     Indication: SECONDARY PROGRESSIVE MULTIPLE SCLEROSIS
     Dosage: ONGOING: YES
     Route: 065
     Dates: start: 201807
  2. OCREVUS [Suspect]
     Active Substance: OCRELIZUMAB
     Dosage: SECOND INFUSION
     Route: 065
     Dates: start: 20180730
  3. RITUXAN [Suspect]
     Active Substance: RITUXIMAB
     Indication: MULTIPLE SCLEROSIS
     Dosage: ONGOING: NO
     Route: 065
     Dates: start: 2016

REACTIONS (17)
  - Headache [Unknown]
  - Feeling abnormal [Unknown]
  - Multiple sclerosis [Unknown]
  - Fibula fracture [Unknown]
  - Flushing [Unknown]
  - Dysphonia [Unknown]
  - Gait disturbance [Unknown]
  - Osteoporosis [Unknown]
  - Intentional product use issue [Unknown]
  - Sensory disturbance [Unknown]
  - Bone pain [Unknown]
  - Ear discomfort [Recovered/Resolved]
  - Stress [Unknown]
  - Fall [Unknown]
  - Off label use [Unknown]
  - Impatience [Unknown]
  - Tibia fracture [Unknown]

NARRATIVE: CASE EVENT DATE: 2016
